FAERS Safety Report 9444491 (Version 1)
Quarter: 2013Q3

REPORT INFORMATION
  Report Type: Spontaneous
  Country: US (occurrence: None)
  Receive Date: 20130806
  Receipt Date: 20130806
  Transmission Date: 20140515
  Serious: Yes (Hospitalization)
  Sender: FDA-Public Use
  Company Number: None

PATIENT
  Age: 72 Year
  Sex: Male
  Weight: 113 kg

DRUGS (2)
  1. CLOPIDOGREL [Suspect]
     Indication: PERCUTANEOUS CORONARY INTERVENTION
     Dosage: 75MG DAILY ORAL
     Route: 048
     Dates: start: 20130225, end: 20130315
  2. CLOPIDOGREL [Suspect]
     Indication: THROMBOSIS PROPHYLAXIS
     Dosage: 75MG DAILY ORAL
     Route: 048
     Dates: start: 20130225, end: 20130315

REACTIONS (7)
  - Polyarthritis [None]
  - Pyrexia [None]
  - Confusional state [None]
  - Mobility decreased [None]
  - Asthenia [None]
  - Renal failure acute [None]
  - White blood cell count increased [None]
